FAERS Safety Report 18459444 (Version 14)
Quarter: 2023Q4

REPORT INFORMATION
  Report Type: Report from Study
  Country: FR (occurrence: FR)
  Receive Date: 20201103
  Receipt Date: 20231016
  Transmission Date: 20240110
  Serious: Yes (Hospitalization, Other)
  Sender: FDA-Public Use
  Company Number: FR-TAKEDA-2020TUS044907

PATIENT
  Age: 16 Year
  Sex: Male

DRUGS (20)
  1. TEDUGLUTIDE [Suspect]
     Active Substance: TEDUGLUTIDE
     Indication: Short-bowel syndrome
     Dosage: 3 MILLIGRAM, QD
     Route: 042
     Dates: start: 20190706, end: 20210426
  2. TEDUGLUTIDE [Suspect]
     Active Substance: TEDUGLUTIDE
     Indication: Short-bowel syndrome
     Dosage: 3 MILLIGRAM, QD
     Route: 042
     Dates: start: 20190706, end: 20210426
  3. TEDUGLUTIDE [Suspect]
     Active Substance: TEDUGLUTIDE
     Indication: Short-bowel syndrome
     Dosage: 3 MILLIGRAM, QD
     Route: 042
     Dates: start: 20190706, end: 20210426
  4. TEDUGLUTIDE [Suspect]
     Active Substance: TEDUGLUTIDE
     Indication: Short-bowel syndrome
     Dosage: 3 MILLIGRAM, QD
     Route: 042
     Dates: start: 20190706, end: 20210426
  5. TEDUGLUTIDE [Suspect]
     Active Substance: TEDUGLUTIDE
     Dosage: 3.2 MILLIGRAM, QD
     Route: 042
     Dates: start: 20210427
  6. TEDUGLUTIDE [Suspect]
     Active Substance: TEDUGLUTIDE
     Dosage: 3.2 MILLIGRAM, QD
     Route: 042
     Dates: start: 20210427
  7. TEDUGLUTIDE [Suspect]
     Active Substance: TEDUGLUTIDE
     Dosage: 3.2 MILLIGRAM, QD
     Route: 042
     Dates: start: 20210427
  8. TEDUGLUTIDE [Suspect]
     Active Substance: TEDUGLUTIDE
     Dosage: 3.2 MILLIGRAM, QD
     Route: 042
     Dates: start: 20210427
  9. FAMOTIDINE [Concomitant]
     Active Substance: FAMOTIDINE
     Indication: Prophylaxis
     Dosage: 20 MILLIGRAM, QD
     Route: 048
     Dates: start: 20200101
  10. FAMOTIDINE [Concomitant]
     Active Substance: FAMOTIDINE
     Dosage: 20 MILLIGRAM, QD
     Route: 048
     Dates: start: 20200101, end: 20200707
  11. FAMOTIDINE [Concomitant]
     Active Substance: FAMOTIDINE
     Dosage: 20 MILLIGRAM, QD
     Route: 048
     Dates: start: 202012
  12. CLAFORAN [Concomitant]
     Active Substance: CEFOTAXIME SODIUM
     Indication: Escherichia infection
     Dosage: UNK
     Route: 042
     Dates: start: 20190610, end: 20190618
  13. VANCOMYCIN [Concomitant]
     Active Substance: VANCOMYCIN
     Indication: Escherichia infection
     Dosage: 60 MILLIGRAM/KILOGRAM
     Route: 042
     Dates: start: 20190610, end: 20190618
  14. SODIUM CHLORIDE [Concomitant]
     Active Substance: SODIUM CHLORIDE
     Indication: Supplementation therapy
     Dosage: 2 SPRAY
     Route: 048
     Dates: start: 20150922
  15. SODIUM CHLORIDE [Concomitant]
     Active Substance: SODIUM CHLORIDE
     Dosage: 12 GRAM
     Route: 065
     Dates: start: 20190911
  16. Fucidine [Concomitant]
     Indication: Antibiotic therapy
     Dosage: 1 DOSAGE FORM, BID
     Route: 008
     Dates: start: 202002, end: 202004
  17. SODIUM CHLORIDE [Concomitant]
     Active Substance: SODIUM CHLORIDE
     Indication: Supplementation therapy
     Dosage: 2 GRAM, BID
     Route: 048
     Dates: start: 20150922, end: 20190911
  18. SODIUM CHLORIDE [Concomitant]
     Active Substance: SODIUM CHLORIDE
     Dosage: 12 GRAM, QD
     Route: 048
     Dates: start: 20190911
  19. RANITIDINE [Concomitant]
     Active Substance: RANITIDINE
     Indication: Secretion gastric absent
     Dosage: 150 MILLIGRAM, QD
     Route: 042
     Dates: start: 20150922, end: 202012
  20. CHOLECALCIFEROL [Concomitant]
     Active Substance: CHOLECALCIFEROL
     Indication: Vitamin D deficiency
     Dosage: 1000000 INTERNATIONAL UNIT, QD
     Route: 048
     Dates: start: 20220211, end: 20220211

REACTIONS (2)
  - Dehydration [Recovered/Resolved]
  - Influenza [Recovered/Resolved]

NARRATIVE: CASE EVENT DATE: 20200501
